FAERS Safety Report 16471596 (Version 1)
Quarter: 2019Q2

REPORT INFORMATION
  Report Type: Spontaneous
  Country: US (occurrence: US)
  Receive Date: 20190624
  Receipt Date: 20190624
  Transmission Date: 20190711
  Serious: No
  Sender: FDA-Public Use
  Company Number: US-TEVA-2019-US-1065112

PATIENT

DRUGS (2)
  1. DOCETAXEL. [Suspect]
     Active Substance: DOCETAXEL
     Route: 065
     Dates: start: 20170511, end: 20170601
  2. DOCETAXEL. [Suspect]
     Active Substance: DOCETAXEL
     Dosage: INJECTION CONCENTRATE
     Route: 065
     Dates: start: 20170511, end: 20170601

REACTIONS (3)
  - Alopecia areata [Unknown]
  - Madarosis [Unknown]
  - Alopecia [Unknown]
